FAERS Safety Report 24270265 (Version 1)
Quarter: 2024Q3

REPORT INFORMATION
  Report Type: Report from Study
  Country: AU (occurrence: AU)
  Receive Date: 20240830
  Receipt Date: 20240830
  Transmission Date: 20241016
  Serious: Yes (Death, Other)
  Sender: JAZZ
  Company Number: AU-JAZZ PHARMACEUTICALS-2024-AU-013868

PATIENT
  Sex: Female

DRUGS (1)
  1. EPIDIOLEX [Suspect]
     Active Substance: CANNABIDIOL
     Indication: Product used for unknown indication
     Dosage: RESPIRATORY (INHALATION)

REACTIONS (2)
  - Death [Fatal]
  - Off label use [Unknown]
